FAERS Safety Report 10011013 (Version 4)
Quarter: 2014Q2

REPORT INFORMATION
  Report Type: Spontaneous
  Country: US (occurrence: US)
  Receive Date: 20140314
  Receipt Date: 20140507
  Transmission Date: 20141212
  Serious: Yes (Hospitalization)
  Sender: FDA-Public Use
  Company Number: US-BAXTER-2014BAX012507

PATIENT
  Sex: Female

DRUGS (5)
  1. DIANEAL PD2 (ULTRABAG) [Suspect]
     Indication: PERITONEAL DIALYSIS
     Route: 033
     Dates: start: 20110816
  2. DIANEAL PD2 (ULTRABAG) [Suspect]
     Indication: PERITONEAL DIALYSIS
     Route: 033
     Dates: start: 20110816
  3. DIANEAL PD2 (ULTRABAG) [Suspect]
     Route: 033
  4. DIANEAL PD2 (ULTRABAG) [Suspect]
     Indication: PERITONEAL DIALYSIS
     Route: 033
  5. DIANEAL PD2 (ULTRABAG) [Suspect]
     Route: 033

REACTIONS (4)
  - Pulmonary thrombosis [Recovered/Resolved]
  - Hypotension [Recovered/Resolved]
  - Memory impairment [Unknown]
  - Fluid overload [Recovering/Resolving]
